FAERS Safety Report 8362294 (Version 3)
Quarter: 2015Q1

REPORT INFORMATION
  Report Type: Report from Study
  Country: US (occurrence: US)
  Receive Date: 20120130
  Receipt Date: 20150224
  Transmission Date: 20150721
  Serious: Yes (Death)
  Sender: FDA-Public Use
  Company Number: US-ROCHE-1034056

PATIENT
  Sex: Male

DRUGS (8)
  1. FLOMAX (UNITED STATES) [Concomitant]
  2. AVASTIN [Suspect]
     Active Substance: BEVACIZUMAB
     Indication: AGE-RELATED MACULAR DEGENERATION
     Route: 065
     Dates: start: 20051105, end: 20060502
  3. COUMADIN (UNITED STATES) [Concomitant]
  4. GLIPIZIDE. [Concomitant]
     Active Substance: GLIPIZIDE
  5. LUCENTIS [Suspect]
     Active Substance: RANIBIZUMAB
     Route: 050
  6. LUCENTIS [Suspect]
     Active Substance: RANIBIZUMAB
     Indication: AGE-RELATED MACULAR DEGENERATION
     Route: 050
     Dates: start: 20011205, end: 20061206
  7. MACUGEN [Suspect]
     Active Substance: PEGAPTANIB SODIUM
     Indication: AGE-RELATED MACULAR DEGENERATION
     Route: 065
     Dates: start: 20050218, end: 20050927
  8. AVAPRO [Concomitant]
     Active Substance: IRBESARTAN

REACTIONS (1)
  - Death [Fatal]
